FAERS Safety Report 18288181 (Version 1)
Quarter: 2020Q3

REPORT INFORMATION
  Report Type: Other
  Country: US (occurrence: ES)
  Receive Date: 20200921
  Receipt Date: 20200921
  Transmission Date: 20201103
  Serious: Yes (Other)
  Sender: FDA-Public Use
  Company Number: US-ROCHE-2674412

PATIENT

DRUGS (1)
  1. OCRELIZUMAB. [Suspect]
     Active Substance: OCRELIZUMAB
     Indication: RELAPSING-REMITTING MULTIPLE SCLEROSIS
     Route: 065

REACTIONS (7)
  - Hypersensitivity [Unknown]
  - Lymphocyte count decreased [Unknown]
  - Urinary tract infection [Unknown]
  - Herpes zoster [Unknown]
  - Erythema [Unknown]
  - Fatigue [Unknown]
  - Headache [Unknown]
